FAERS Safety Report 13338747 (Version 1)
Quarter: 2017Q1

REPORT INFORMATION
  Report Type: Spontaneous
  Country: BR (occurrence: BR)
  Receive Date: 20170315
  Receipt Date: 20170315
  Transmission Date: 20170428
  Serious: Yes (Hospitalization)
  Sender: FDA-Public Use
  Company Number: BR-PFIZER INC-2017108492

PATIENT
  Age: 54 Year
  Sex: Female

DRUGS (1)
  1. ALDAZIDA [Suspect]
     Active Substance: HYDROCHLOROTHIAZIDE\SPIRONOLACTONE
     Indication: BLOOD PRESSURE INCREASED
     Dosage: UNK

REACTIONS (3)
  - Bronchitis [Unknown]
  - Overweight [Unknown]
  - Asthma [Unknown]

NARRATIVE: CASE EVENT DATE: 2016
